FAERS Safety Report 22047672 (Version 3)
Quarter: 2023Q2

REPORT INFORMATION
  Report Type: Spontaneous
  Country: ES (occurrence: ES)
  Receive Date: 20230301
  Receipt Date: 20230512
  Transmission Date: 20230721
  Serious: Yes (Hospitalization, Other)
  Sender: FDA-Public Use
  Company Number: ES-AUROBINDO-AUR-APL-2023-007389

PATIENT
  Age: 15 Year
  Sex: Male

DRUGS (4)
  1. ARIPIPRAZOLE [Suspect]
     Active Substance: ARIPIPRAZOLE
     Indication: Schizophrenia
     Dosage: 10 MILLIGRAM, ONCE A DAY
     Route: 065
  2. ARIPIPRAZOLE [Suspect]
     Active Substance: ARIPIPRAZOLE
     Indication: Schizophrenia
  3. RISPERIDONE [Suspect]
     Active Substance: RISPERIDONE
     Indication: Schizophrenia
     Dosage: 6 MILLIGRAM, ONCE A DAY
     Route: 065
  4. RISPERIDONE [Suspect]
     Active Substance: RISPERIDONE
     Indication: Schizophrenia

REACTIONS (6)
  - Hyperprolactinaemia [Unknown]
  - Somnolence [Unknown]
  - Bradyphrenia [Unknown]
  - Schizophrenia [Recovering/Resolving]
  - Therapy partial responder [Unknown]
  - Drug ineffective [Unknown]
